FAERS Safety Report 8072734-1 (Version None)
Quarter: 2012Q1

REPORT INFORMATION
  Report Type: 
  Country: None (occurrence: None)
  Receive Date: 20120126
  Receipt Date: 20120116
  Transmission Date: 20120608
  Serious: Yes (Other)
  Sender: FDA-Public Use
  Company Number: CHPA2012US001435

PATIENT
  Sex: Female

DRUGS (1)
  1. EXCEDRIN EXTRA STRENGTH TABLETS [Suspect]
     Indication: PAIN
     Dosage: 2 DF, QD
     Route: 048

REACTIONS (9)
  - JOINT DISLOCATION [None]
  - INCORRECT DRUG ADMINISTRATION DURATION [None]
  - PRODUCT QUALITY ISSUE [None]
  - GLAUCOMA [None]
  - ABDOMINAL PAIN UPPER [None]
  - CATARACT [None]
  - FEELING ABNORMAL [None]
  - PAIN [None]
  - DISEASE RECURRENCE [None]
